FAERS Safety Report 6083204-4 (Version None)
Quarter: 2009Q1

REPORT INFORMATION
  Report Type: 
  Country: None (occurrence: None)
  Receive Date: 20090219
  Receipt Date: 20090210
  Transmission Date: 20090719
  Serious: Yes (Other)
  Sender: FDA-Public Use
  Company Number: DE-JNJFOC-20080900129

PATIENT
  Sex: Female

DRUGS (5)
  1. INVEGA [Suspect]
     Route: 048
  2. INVEGA [Suspect]
     Indication: PSYCHOTIC DISORDER
     Route: 048
  3. PROTHIPENDYL [Concomitant]
     Indication: PSYCHOTIC DISORDER
     Route: 065
  4. DOCITON [Concomitant]
     Route: 065
  5. ARIMIDEX [Concomitant]
     Indication: BREAST CANCER
     Route: 065

REACTIONS (2)
  - BLOOD THYROID STIMULATING HORMONE DECREASED [None]
  - GOITRE [None]
